FAERS Safety Report 21890020 (Version 1)
Quarter: 2023Q1

REPORT INFORMATION
  Report Type: Spontaneous
  Country: AR (occurrence: AR)
  Receive Date: 20230120
  Receipt Date: 20230120
  Transmission Date: 20230418
  Serious: Yes (Death, Other)
  Sender: FDA-Public Use
  Company Number: AR-GLAXOSMITHKLINE-AR2022AMR128707

PATIENT

DRUGS (2)
  1. ZEJULA [Suspect]
     Active Substance: NIRAPARIB
     Indication: Product used for unknown indication
     Dosage: 100 MG
     Dates: start: 20220829
  2. ZEJULA [Suspect]
     Active Substance: NIRAPARIB
     Dosage: UNK

REACTIONS (4)
  - Death [Fatal]
  - Neoplasm [Unknown]
  - Anaemia [Unknown]
  - Feeling abnormal [Unknown]

NARRATIVE: CASE EVENT DATE: 20230117
